FAERS Safety Report 13035328 (Version 1)
Quarter: 2016Q4

REPORT INFORMATION
  Report Type: Report from Study
  Country: BR (occurrence: BR)
  Receive Date: 20161216
  Receipt Date: 20161216
  Transmission Date: 20170207
  Serious: Yes (Death, Other)
  Sender: FDA-Public Use
  Company Number: PHHY2016BR172438

PATIENT
  Sex: Female
  Weight: 61 kg

DRUGS (4)
  1. DESFERAL [Suspect]
     Active Substance: DEFEROXAMINE MESYLATE
     Indication: SICKLE CELL ANAEMIA
     Dosage: UNK
     Route: 065
  2. EXJADE [Suspect]
     Active Substance: DEFERASIROX
     Indication: SICKLE CELL ANAEMIA
     Dosage: 1500 MG, QD (3 DISPERSIBLE TABLETS OF 500MG)
     Route: 048
     Dates: start: 2005
  3. EXJADE [Suspect]
     Active Substance: DEFERASIROX
     Dosage: 250 MG, QD
     Route: 048
  4. EXJADE [Suspect]
     Active Substance: DEFERASIROX
     Dosage: 125 MG, QD
     Route: 048

REACTIONS (5)
  - Death [Fatal]
  - Haemorrhage [Unknown]
  - Vision blurred [Unknown]
  - Blindness [Unknown]
  - Cataract [Unknown]

NARRATIVE: CASE EVENT DATE: 2001
